FAERS Safety Report 17838513 (Version 21)
Quarter: 2022Q4

REPORT INFORMATION
  Report Type: Report from Study
  Country: CO (occurrence: CO)
  Receive Date: 20200528
  Receipt Date: 20221227
  Transmission Date: 20230113
  Serious: Yes (Hospitalization, Disabling, Other)
  Sender: FDA-Public Use
  Company Number: NVSC2020CO055412

PATIENT
  Sex: Female
  Weight: 56 kg

DRUGS (4)
  1. COSENTYX [Suspect]
     Active Substance: SECUKINUMAB
     Indication: Psoriatic arthropathy
     Dosage: 150 MG, QMO
     Route: 058
     Dates: start: 20170406
  2. COSENTYX [Suspect]
     Active Substance: SECUKINUMAB
     Dosage: 150 MG, QMO
     Route: 065
     Dates: start: 20190307
  3. COSENTYX [Suspect]
     Active Substance: SECUKINUMAB
     Dosage: 150 MG, QMO
     Route: 065
     Dates: start: 20191220
  4. COSENTYX [Suspect]
     Active Substance: SECUKINUMAB
     Dosage: 150 MG, QMO
     Route: 058

REACTIONS (43)
  - Vertigo [Unknown]
  - Dysarthria [Unknown]
  - Skin plaque [Recovering/Resolving]
  - Syncope [Unknown]
  - Hypertensive crisis [Unknown]
  - Arthralgia [Recovering/Resolving]
  - SARS-CoV-2 test positive [Recovering/Resolving]
  - Skin haemorrhage [Unknown]
  - Breast pain [Not Recovered/Not Resolved]
  - Abdominal pain upper [Not Recovered/Not Resolved]
  - Weight decreased [Unknown]
  - Influenza [Unknown]
  - Oropharyngeal pain [Unknown]
  - Depression [Unknown]
  - Stress [Recovered/Resolved]
  - Blood potassium decreased [Unknown]
  - Blood glucose decreased [Unknown]
  - Viral infection [Unknown]
  - Pruritus [Unknown]
  - Cold sweat [Unknown]
  - Vomiting [Unknown]
  - Blood pressure increased [Unknown]
  - Scratch [Unknown]
  - Rash macular [Recovered/Resolved]
  - Nasal congestion [Recovering/Resolving]
  - Cough [Recovering/Resolving]
  - Hypersensitivity [Unknown]
  - Memory impairment [Unknown]
  - Arthropathy [Unknown]
  - Gait disturbance [Unknown]
  - Finger deformity [Recovering/Resolving]
  - Stress [Unknown]
  - Dysphonia [Unknown]
  - Nervousness [Unknown]
  - Condition aggravated [Unknown]
  - Pain in extremity [Recovering/Resolving]
  - Psoriasis [Unknown]
  - Nasopharyngitis [Recovering/Resolving]
  - Skin lesion [Unknown]
  - Arthritis [Unknown]
  - Drug ineffective [Not Recovered/Not Resolved]
  - Product communication issue [Unknown]
  - Product dose omission issue [Unknown]

NARRATIVE: CASE EVENT DATE: 20190101
